FAERS Safety Report 19020135 (Version 2)
Quarter: 2021Q2

REPORT INFORMATION
  Report Type: Report from Study
  Country: BE (occurrence: BE)
  Receive Date: 20210317
  Receipt Date: 20210504
  Transmission Date: 20210717
  Serious: Yes (Hospitalization)
  Sender: FDA-Public Use
  Company Number: BE-ROCHE-2761525

PATIENT
  Age: 40 Year
  Sex: Male
  Weight: 66.4 kg

DRUGS (15)
  1. TRADONAL [Concomitant]
     Active Substance: TRAMADOL HYDROCHLORIDE
     Dosage: ONGOING: NO
  2. ATEZOLIZUMAB. [Suspect]
     Active Substance: ATEZOLIZUMAB
     Indication: RECTAL CANCER
     Dosage: ON 28/SEP/2020, 19/OCT/2020 AND 09/NOV/2020, HE RECEIVED SUBSEQUENT DOSES OF ATEZOLIZUMAB.?ON DAY 1
     Route: 041
     Dates: start: 20200908
  3. FLUOROURACIL. [Suspect]
     Active Substance: FLUOROURACIL
     Indication: RECTAL CANCER
     Dosage: ON 31/AUG/2020, 08/SEP/2020, 14/SEP/2020 AND 21/SEP/2020, HE RECEIVED SUBSEQUENT DOSES OF FLUOROURAC
     Route: 042
     Dates: start: 20200824
  4. OXYCONTIN [Concomitant]
     Active Substance: OXYCODONE HYDROCHLORIDE
     Dosage: CONTINUED
  5. LITICAN [Concomitant]
     Active Substance: ALIZAPRIDE HYDROCHLORIDE
     Dosage: DAILY, ONGOING
  6. MOVICOL [Concomitant]
     Active Substance: POLYETHYLENE GLYCOL 3350\POTASSIUM CHLORIDE\SODIUM BICARBONATE\SODIUM CHLORIDE
  7. GLUCOPHAGE [Concomitant]
     Active Substance: METFORMIN HYDROCHLORIDE
     Dosage: ONGOING: NO
  8. DAFALGAN [Concomitant]
     Active Substance: ACETAMINOPHEN
     Dosage: ONGOING: YES
  9. SANDOZ CIPROFLOXACIN [Concomitant]
     Active Substance: CIPROFLOXACIN
     Dates: start: 20201110
  10. FOLAVIT [Concomitant]
     Active Substance: FOLIC ACID
     Dosage: DAILY, ONGOING
  11. EXACYL [Concomitant]
     Active Substance: TRANEXAMIC ACID
     Dosage: DISCONTINUED
  12. FERO?GRAD [Concomitant]
     Active Substance: FERROUS SULFATE\SODIUM ASCORBATE
  13. ZINNAT [Concomitant]
     Active Substance: CEFUROXIME
     Dosage: DISCONTINUED
  14. OXYCONTIN [Concomitant]
     Active Substance: OXYCODONE HYDROCHLORIDE
     Dosage: DISCONTINUED
  15. MOTILIUM [Concomitant]
     Active Substance: DOMPERIDONE
     Dosage: ONGOING: NO

REACTIONS (5)
  - Acute kidney injury [Recovered/Resolved]
  - Escherichia urinary tract infection [Recovered/Resolved]
  - Stoma complication [Recovered/Resolved]
  - Malnutrition [Recovered/Resolved]
  - Pyelonephritis [Recovered/Resolved]

NARRATIVE: CASE EVENT DATE: 20201226
